FAERS Safety Report 9314465 (Version 1)
Quarter: 2013Q2

REPORT INFORMATION
  Report Type: Report from Study
  Country: IE (occurrence: IE)
  Receive Date: 20130529
  Receipt Date: 20130529
  Transmission Date: 20140414
  Serious: Yes (Death, Other)
  Sender: FDA-Public Use
  Company Number: IE-ROCHE-1227069

PATIENT
  Sex: 0

DRUGS (4)
  1. CAPECITABINE [Suspect]
     Indication: GASTROOESOPHAGEAL CANCER
     Route: 048
  2. CISPLATIN [Suspect]
     Indication: GASTROOESOPHAGEAL CANCER
     Route: 042
  3. AMG 386 [Suspect]
     Indication: GASTROOESOPHAGEAL CANCER
     Route: 042
  4. AMG 386 [Suspect]
     Route: 042

REACTIONS (23)
  - Gastric haemorrhage [Fatal]
  - Haematemesis [Fatal]
  - Myocardial infarction [Fatal]
  - Transient ischaemic attack [Fatal]
  - Gastrointestinal perforation [Unknown]
  - Fatigue [Unknown]
  - Decreased appetite [Unknown]
  - Diarrhoea [Unknown]
  - Constipation [Unknown]
  - Palmar-plantar erythrodysaesthesia syndrome [Unknown]
  - Abdominal pain upper [Unknown]
  - Asthenia [Unknown]
  - Hypomagnesaemia [Unknown]
  - Mucosal inflammation [Unknown]
  - Dehydration [Unknown]
  - Pyrexia [Unknown]
  - Pulmonary embolism [Unknown]
  - Embolism venous [Unknown]
  - Embolism [Unknown]
  - Weight decreased [Unknown]
  - Dyspnoea [Unknown]
  - Oedema peripheral [Unknown]
  - Impaired healing [Unknown]
